FAERS Safety Report 18566347 (Version 1)
Quarter: 2020Q4

REPORT INFORMATION
  Report Type: Spontaneous
  Country: US (occurrence: US)
  Receive Date: 20201201
  Receipt Date: 20201201
  Transmission Date: 20210114
  Serious: Yes (Life-Threatening)
  Sender: FDA-Public Use
  Company Number: US-PFIZER INC-2020469693

PATIENT

DRUGS (1)
  1. METHOTREXATE SODIUM. [Suspect]
     Active Substance: METHOTREXATE SODIUM
     Dosage: UNK,HIGH DOSE
     Route: 042

REACTIONS (4)
  - Pruritus [Unknown]
  - Urticaria [Unknown]
  - Asthma [Unknown]
  - Hypersensitivity [Unknown]
